FAERS Safety Report 23283896 (Version 2)
Quarter: 2024Q2

REPORT INFORMATION
  Report Type: Spontaneous
  Country: CA (occurrence: CA)
  Receive Date: 20231211
  Receipt Date: 20240425
  Transmission Date: 20240715
  Serious: Yes (Other)
  Sender: FDA-Public Use
  Company Number: CA-002147023-NVSC2020CA248526

PATIENT
  Age: 59 Year
  Sex: Female

DRUGS (86)
  1. AIMOVIG [Suspect]
     Active Substance: ERENUMAB-AOOE
     Indication: Migraine
     Dosage: UNK
     Route: 005
  2. AIMOVIG [Suspect]
     Active Substance: ERENUMAB-AOOE
     Dosage: UNK
     Route: 065
  3. CITALOPRAM HYDROBROMIDE [Suspect]
     Active Substance: CITALOPRAM HYDROBROMIDE
     Indication: Product used for unknown indication
     Dosage: 20 MG, UNKNOWN
     Route: 016
  4. CITALOPRAM HYDROBROMIDE [Suspect]
     Active Substance: CITALOPRAM HYDROBROMIDE
     Indication: Depression
     Dosage: UNK
     Route: 065
  5. CODEINE PHOSPHATE [Suspect]
     Active Substance: CODEINE PHOSPHATE
     Indication: Product used for unknown indication
     Dosage: 100 MG, UNKNOWN
     Route: 065
  6. CODEINE PHOSPHATE [Suspect]
     Active Substance: CODEINE PHOSPHATE
     Indication: Migraine
     Dosage: UNK
     Route: 065
  7. DEXAMETHASONE [Suspect]
     Active Substance: DEXAMETHASONE
     Indication: Migraine
     Dosage: 4 MG, UNKNOWN
     Route: 065
  8. DICLOFENAC [Suspect]
     Active Substance: DICLOFENAC
     Indication: Product used for unknown indication
     Dosage: 75 MG, UNKNOWN
     Route: 065
  9. DICLOFENAC [Suspect]
     Active Substance: DICLOFENAC
     Indication: Migraine
     Dosage: UNK UNK, UNKNOWN
     Route: 065
  10. FLUOXETINE [Suspect]
     Active Substance: FLUOXETINE HYDROCHLORIDE
     Indication: Migraine
     Dosage: 10 MG, UNKNOWN
     Route: 065
  11. FLUOXETINE [Suspect]
     Active Substance: FLUOXETINE HYDROCHLORIDE
     Dosage: 10 MG, UNKNOWN
     Route: 065
  12. FLUOXETINE [Suspect]
     Active Substance: FLUOXETINE HYDROCHLORIDE
     Dosage: 30 MG, UNKNOWN
     Route: 065
  13. FLUOXETINE [Suspect]
     Active Substance: FLUOXETINE HYDROCHLORIDE
     Indication: Product used for unknown indication
     Dosage: UNK
     Route: 016
  14. FLUOXETINE [Suspect]
     Active Substance: FLUOXETINE HYDROCHLORIDE
     Dosage: UNK
     Route: 065
  15. MORPHINE [Suspect]
     Active Substance: MORPHINE
     Indication: Migraine
     Dosage: 5 MG, UNKNOWN
     Route: 065
  16. SUMATRIPTAN SUCCINATE [Suspect]
     Active Substance: SUMATRIPTAN SUCCINATE
     Indication: Migraine
     Dosage: 100 MG, QD
     Route: 065
  17. SUMATRIPTAN SUCCINATE [Suspect]
     Active Substance: SUMATRIPTAN SUCCINATE
     Indication: Pain
     Dosage: 100 UNK
     Route: 065
  18. SUMATRIPTAN SUCCINATE [Suspect]
     Active Substance: SUMATRIPTAN SUCCINATE
     Dosage: 100 MG
     Route: 065
  19. SUMATRIPTAN SUCCINATE [Suspect]
     Active Substance: SUMATRIPTAN SUCCINATE
     Indication: Product used for unknown indication
     Dosage: 100 UNK
     Route: 065
  20. SUMATRIPTAN SUCCINATE [Suspect]
     Active Substance: SUMATRIPTAN SUCCINATE
     Dosage: UNK
     Route: 065
  21. VENLAFAXINE HYDROCHLORIDE [Suspect]
     Active Substance: VENLAFAXINE HYDROCHLORIDE
     Dosage: 37.5 MG
     Route: 016
  22. VENLAFAXINE HYDROCHLORIDE [Suspect]
     Active Substance: VENLAFAXINE HYDROCHLORIDE
     Indication: Depression
     Dosage: 37.5 MG
     Route: 065
  23. VENLAFAXINE HYDROCHLORIDE [Suspect]
     Active Substance: VENLAFAXINE HYDROCHLORIDE
     Dosage: UNK
     Route: 065
  24. VORTIOXETINE HYDROBROMIDE [Suspect]
     Active Substance: VORTIOXETINE HYDROBROMIDE
     Indication: Depression
     Dosage: UNK
     Route: 065
  25. WELLBUTRIN [Suspect]
     Active Substance: BUPROPION HYDROCHLORIDE
     Indication: Product used for unknown indication
     Dosage: 100 MG
     Route: 065
  26. WELLBUTRIN [Suspect]
     Active Substance: BUPROPION HYDROCHLORIDE
     Indication: Depression
     Dosage: 100 MG, UNKNOWN
     Route: 065
  27. WELLBUTRIN [Suspect]
     Active Substance: BUPROPION HYDROCHLORIDE
     Dosage: 150 MG
     Route: 065
  28. WELLBUTRIN [Suspect]
     Active Substance: BUPROPION HYDROCHLORIDE
     Dosage: 150 MG
     Route: 065
  29. WELLBUTRIN [Suspect]
     Active Substance: BUPROPION HYDROCHLORIDE
     Dosage: UNK
     Route: 065
  30. ABILIFY [Concomitant]
     Active Substance: ARIPIPRAZOLE
     Indication: Product used for unknown indication
     Dosage: 5 MG
     Route: 016
  31. ACETAMINOPHEN [Concomitant]
     Active Substance: ACETAMINOPHEN
     Indication: Product used for unknown indication
     Dosage: 30 MG, UNKNOWN
     Route: 065
  32. ACETAMINOPHEN [Concomitant]
     Active Substance: ACETAMINOPHEN
     Dosage: UNK
     Route: 065
  33. ALLOPURINOL [Concomitant]
     Active Substance: ALLOPURINOL
     Indication: Product used for unknown indication
     Dosage: 25 MG, UNKNOWN
     Route: 065
  34. ALLOPURINOL [Concomitant]
     Active Substance: ALLOPURINOL
     Dosage: UNK
     Route: 065
  35. BACLOFEN [Concomitant]
     Active Substance: BACLOFEN
     Dosage: 10 MG
     Route: 065
  36. BACLOFEN [Concomitant]
     Active Substance: BACLOFEN
     Indication: Product used for unknown indication
     Dosage: 10 MG, UNKNOWN
     Route: 065
  37. BACLOFEN [Concomitant]
     Active Substance: BACLOFEN
     Dosage: UNK
     Route: 065
  38. BOTOX [Concomitant]
     Active Substance: ONABOTULINUMTOXINA
     Indication: Product used for unknown indication
     Dosage: 100 IU
     Route: 030
  39. BOTOX [Concomitant]
     Active Substance: ONABOTULINUMTOXINA
     Dosage: 200 IU
     Route: 042
  40. BOTULINUM TOXIN TYPE A [Concomitant]
     Active Substance: BOTULINUM TOXIN TYPE A
     Indication: Product used for unknown indication
     Dosage: 100 IU, UNKNOWN
     Route: 065
  41. BOTULINUM TOXIN TYPE A [Concomitant]
     Active Substance: BOTULINUM TOXIN TYPE A
     Dosage: 100 IU
     Route: 065
  42. BOTULINUM TOXIN TYPE A [Concomitant]
     Active Substance: BOTULINUM TOXIN TYPE A
     Dosage: 200 IU
     Route: 065
  43. BOTULINUM TOXIN TYPE A [Concomitant]
     Active Substance: BOTULINUM TOXIN TYPE A
     Dosage: UNK
     Route: 065
  44. CIPRALEX [Concomitant]
     Active Substance: ESCITALOPRAM OXALATE
     Indication: Product used for unknown indication
     Dosage: UNK
     Route: 065
  45. CIPRALEX [Concomitant]
     Active Substance: ESCITALOPRAM OXALATE
     Dosage: UNK
     Route: 065
  46. CLONAZEPAM [Concomitant]
     Active Substance: CLONAZEPAM
     Indication: Product used for unknown indication
     Dosage: UNK
     Route: 016
  47. CLONAZEPAM [Concomitant]
     Active Substance: CLONAZEPAM
     Dosage: UNK
     Route: 016
  48. CYCLOBENZAPRINE [Concomitant]
     Active Substance: CYCLOBENZAPRINE
     Indication: Product used for unknown indication
     Dosage: UNK
     Route: 065
  49. CYCLOBENZAPRINE [Concomitant]
     Active Substance: CYCLOBENZAPRINE
     Dosage: UNK
     Route: 065
  50. CYMBALTA [Concomitant]
     Active Substance: DULOXETINE HYDROCHLORIDE
     Indication: Product used for unknown indication
     Dosage: UNK
     Route: 016
  51. CYMBALTA [Concomitant]
     Active Substance: DULOXETINE HYDROCHLORIDE
     Dosage: UNK
     Route: 016
  52. ELAVIL [Concomitant]
     Active Substance: AMITRIPTYLINE HYDROCHLORIDE
     Indication: Product used for unknown indication
     Dosage: 25 MG, UNKNOWN
     Route: 065
  53. ELAVIL [Concomitant]
     Active Substance: AMITRIPTYLINE HYDROCHLORIDE
     Dosage: UNK
     Route: 065
  54. IMOVANE [Concomitant]
     Active Substance: ZOPICLONE
     Indication: Product used for unknown indication
     Dosage: UNK
     Route: 065
  55. IMOVANE [Concomitant]
     Active Substance: ZOPICLONE
     Dosage: UNK
     Route: 065
  56. LAMOTRIGINE [Concomitant]
     Active Substance: LAMOTRIGINE
     Indication: Product used for unknown indication
     Dosage: UNK
     Route: 065
  57. LAMOTRIGINE [Concomitant]
     Active Substance: LAMOTRIGINE
     Dosage: UNK
     Route: 065
  58. LITHIUM [Concomitant]
     Active Substance: LITHIUM
     Indication: Product used for unknown indication
     Dosage: 150 MG, UNKNOWN
     Route: 065
  59. LITHIUM [Concomitant]
     Active Substance: LITHIUM
     Dosage: UNK
     Route: 065
  60. LYRICA [Concomitant]
     Active Substance: PREGABALIN
     Indication: Product used for unknown indication
     Dosage: 75 MG, UNKNOWN
     Route: 065
  61. LYRICA [Concomitant]
     Active Substance: PREGABALIN
     Dosage: UNK
     Route: 065
  62. NAPROXEN [Concomitant]
     Active Substance: NAPROXEN
     Dosage: 100 MG
     Route: 016
  63. NAPROXEN [Concomitant]
     Active Substance: NAPROXEN
     Indication: Product used for unknown indication
     Dosage: 375 MG, UNKNOWN
     Route: 065
  64. NAPROXEN [Concomitant]
     Active Substance: NAPROXEN
     Dosage: UNK
     Route: 065
  65. NORFLEX [Concomitant]
     Active Substance: ORPHENADRINE CITRATE
     Indication: Product used for unknown indication
     Dosage: 100 MG, UNKNOWN
     Route: 016
  66. NORFLEX [Concomitant]
     Active Substance: ORPHENADRINE CITRATE
     Dosage: UNK
     Route: 016
  67. PAROXETINE HYDROCHLORIDE [Concomitant]
     Active Substance: PAROXETINE HYDROCHLORIDE\PAROXETINE HYDROCHLORIDE ANHYDROUS
     Indication: Product used for unknown indication
     Dosage: UNK
     Route: 065
  68. PAROXETINE HYDROCHLORIDE [Concomitant]
     Active Substance: PAROXETINE HYDROCHLORIDE\PAROXETINE HYDROCHLORIDE ANHYDROUS
     Dosage: UNK
     Route: 065
  69. PREDNISONE [Concomitant]
     Active Substance: PREDNISONE
     Indication: Product used for unknown indication
     Dosage: 50 MG, UNKNOWN
     Route: 065
  70. PREDNISONE [Concomitant]
     Active Substance: PREDNISONE
     Dosage: UNK
     Route: 065
  71. TEMAZEPAM [Concomitant]
     Active Substance: TEMAZEPAM
     Indication: Product used for unknown indication
     Dosage: 15 MG, UNKNOWN
     Route: 016
  72. TEMAZEPAM [Concomitant]
     Active Substance: TEMAZEPAM
     Dosage: UNK
     Route: 016
  73. TOPAMAX [Concomitant]
     Active Substance: TOPIRAMATE
     Dosage: 25 MG, BID
     Route: 065
  74. TOPAMAX [Concomitant]
     Active Substance: TOPIRAMATE
     Indication: Product used for unknown indication
     Dosage: 25 MG
     Route: 065
  75. TOPIRAMATE [Concomitant]
     Active Substance: TOPIRAMATE
     Indication: Product used for unknown indication
     Dosage: 25 MG, BID
     Route: 065
  76. TRAZODONE [Concomitant]
     Active Substance: TRAZODONE HYDROCHLORIDE
     Indication: Product used for unknown indication
     Dosage: 50 MG, UNKNOWN
     Route: 065
  77. TRAZODONE [Concomitant]
     Active Substance: TRAZODONE HYDROCHLORIDE
     Dosage: UNK
     Route: 065
  78. TYLENOL [Concomitant]
     Active Substance: ACETAMINOPHEN
     Indication: Product used for unknown indication
     Dosage: 30 MG, UNKNOWN
     Route: 065
  79. TYLENOL [Concomitant]
     Active Substance: ACETAMINOPHEN
     Dosage: UNK
     Route: 065
  80. ZOPICLONE [Concomitant]
     Active Substance: ZOPICLONE
     Indication: Product used for unknown indication
     Dosage: 7.5 MG, QD
     Route: 065
  81. ZOPICLONE [Concomitant]
     Active Substance: ZOPICLONE
     Dosage: 7.5 MG, UNKNOWN
     Route: 065
  82. ZOPICLONE [Concomitant]
     Active Substance: ZOPICLONE
     Dosage: 7.5 MG, UNKNOWN
     Route: 065
  83. ZOPICLONE [Concomitant]
     Active Substance: ZOPICLONE
     Dosage: 7.5 MG, UNKNOWN
     Route: 065
  84. ZOPICLONE [Concomitant]
     Active Substance: ZOPICLONE
     Dosage: UNK
     Route: 065
  85. ZOPICLONE [Concomitant]
     Active Substance: ZOPICLONE
     Dosage: UNK
     Route: 065
  86. ZOPICLONE [Concomitant]
     Active Substance: ZOPICLONE
     Dosage: UNK
     Route: 065

REACTIONS (39)
  - Anxiety [Unknown]
  - Body temperature increased [Unknown]
  - Concussion [Unknown]
  - Contusion [Unknown]
  - Dysgeusia [Unknown]
  - Dyspepsia [Unknown]
  - Feeling hot [Unknown]
  - Flushing [Unknown]
  - Gastrooesophageal reflux disease [Unknown]
  - Hostility [Unknown]
  - Hyperhidrosis [Unknown]
  - Hypoaesthesia [Unknown]
  - Irritability [Unknown]
  - Libido increased [Unknown]
  - Memory impairment [Unknown]
  - Middle insomnia [Unknown]
  - Muscle twitching [Unknown]
  - Nightmare [Unknown]
  - Personality disorder [Unknown]
  - Post-traumatic neck syndrome [Unknown]
  - Poor quality sleep [Unknown]
  - Rib fracture [Unknown]
  - Sedation [Unknown]
  - Soft tissue injury [Unknown]
  - Somnolence [Unknown]
  - Sternal fracture [Unknown]
  - Tremor [Unknown]
  - Vertigo [Unknown]
  - Weight decreased [Unknown]
  - Weight increased [Unknown]
  - Diarrhoea [Unknown]
  - Dizziness [Unknown]
  - Nausea [Unknown]
  - Headache [Unknown]
  - Migraine [Unknown]
  - Product use in unapproved indication [Unknown]
  - Off label use [Unknown]
  - Drug ineffective [Unknown]
  - Incorrect route of product administration [Unknown]
